FAERS Safety Report 16186019 (Version 2)
Quarter: 2019Q2

REPORT INFORMATION
  Report Type: Report from Study
  Country: US (occurrence: US)
  Receive Date: 20190411
  Receipt Date: 20190501
  Transmission Date: 20190711
  Serious: Yes (Hospitalization, Other)
  Sender: FDA-Public Use
  Company Number: US-BAYER-2019-070282

PATIENT
  Age: 50 Year
  Sex: Female

DRUGS (2)
  1. NEXAVAR [Suspect]
     Active Substance: SORAFENIB
     Indication: HEPATOCELLULAR CARCINOMA
     Dosage: 400 MG, BID
     Route: 048
     Dates: start: 20190323, end: 20190328
  2. NEXAVAR [Suspect]
     Active Substance: SORAFENIB
     Indication: HEPATOCELLULAR CARCINOMA
     Dosage: 200 MG, BID
     Route: 048
     Dates: start: 20190329

REACTIONS (6)
  - Fall [None]
  - Nausea [Not Recovered/Not Resolved]
  - Dehydration [None]
  - Vomiting [None]
  - Genital abscess [None]
  - Product use issue [None]

NARRATIVE: CASE EVENT DATE: 20190405
